FAERS Safety Report 5579423-3 (Version None)
Quarter: 2008Q1

REPORT INFORMATION
  Report Type: 
  Country: None (occurrence: None)
  Receive Date: 20080102
  Receipt Date: 20071109
  Transmission Date: 20080703
  Serious: Yes (Hospitalization, Other)
  Sender: FDA-Public Use
  Company Number: US-PURDUE-USA_2007_0030639

PATIENT
  Sex: Male

DRUGS (1)
  1. OXYCONTIN [Suspect]
     Indication: DRUG ABUSE
     Dosage: UNK MG, UNK
     Route: 048
     Dates: start: 19990601, end: 20000801

REACTIONS (4)
  - ACNE [None]
  - DRUG DEPENDENCE [None]
  - RENAL IMPAIRMENT [None]
  - TOOTH LOSS [None]
